FAERS Safety Report 8258901 (Version 2)
Quarter: 2014Q1

REPORT INFORMATION
  Report Type: Spontaneous
  Country: US (occurrence: US)
  Receive Date: 20111122
  Receipt Date: 20140312
  Transmission Date: 20141002
  Serious: Yes (Other)
  Sender: FDA-Public Use
  Company Number: US-AMGEN-USASP2011060274

PATIENT
  Age: 56 Year
  Sex: Female

DRUGS (1)
  1. ENBREL [Suspect]
     Indication: PSORIASIS
     Dosage: 25 MG, QWK
     Route: 065
     Dates: start: 20040901

REACTIONS (6)
  - Morton^s neuralgia [Recovered/Resolved]
  - Foot operation [Recovered/Resolved]
  - Pain in extremity [Not Recovered/Not Resolved]
  - Cyst [Not Recovered/Not Resolved]
  - Limb discomfort [Unknown]
  - Condition aggravated [Unknown]
